FAERS Safety Report 18038614 (Version 2)
Quarter: 2020Q3

REPORT INFORMATION
  Report Type: Spontaneous
  Country: US (occurrence: US)
  Receive Date: 20200717
  Receipt Date: 20200720
  Transmission Date: 20201103
  Serious: No
  Sender: FDA-Public Use
  Company Number: US-PFIZER INC-2020236710

PATIENT
  Age: 44 Year
  Sex: Female

DRUGS (1)
  1. XELJANZ XR [Suspect]
     Active Substance: TOFACITINIB CITRATE
     Dosage: 11 MG
     Dates: start: 20200505

REACTIONS (2)
  - Product dose omission issue [Unknown]
  - Headache [Unknown]

NARRATIVE: CASE EVENT DATE: 2020
